FAERS Safety Report 14890718 (Version 1)
Quarter: 2018Q2

REPORT INFORMATION
  Report Type: Report from Study
  Country: US (occurrence: US)
  Receive Date: 20180514
  Receipt Date: 20180514
  Transmission Date: 20180711
  Serious: Yes (Hospitalization)
  Sender: FDA-Public Use
  Company Number: US-SA-2018SA135644

PATIENT
  Age: 24 Month
  Sex: Female

DRUGS (1)
  1. CEREZYME [Suspect]
     Active Substance: IMIGLUCERASE
     Indication: GAUCHER^S DISEASE
     Dosage: DOSE:400?FREQUENCY:Q2
     Route: 041
     Dates: start: 20170920

REACTIONS (2)
  - Seizure [Unknown]
  - Feeding disorder [Unknown]

NARRATIVE: CASE EVENT DATE: 20180508
